FAERS Safety Report 8624020-6 (Version None)
Quarter: 2012Q3

REPORT INFORMATION
  Report Type: 
  Country: None (occurrence: None)
  Receive Date: 20120827
  Receipt Date: 20120816
  Transmission Date: 20120928
  Serious: Yes (Other)
  Sender: FDA-Public Use
  Company Number: CN-ASTRAZENECA-2012SE60906

PATIENT
  Age: 22094 Day
  Sex: Male
  Weight: 55.8 kg

DRUGS (3)
  1. ATROVENT [Concomitant]
  2. KEBITE [Concomitant]
  3. PULMICORT [Suspect]
     Indication: ASTHMA
     Route: 055
     Dates: start: 20110629, end: 20110629

REACTIONS (4)
  - OROPHARYNGEAL DISCOMFORT [None]
  - ASTHMA [None]
  - DYSPNOEA [None]
  - DRUG INEFFECTIVE [None]
